FAERS Safety Report 18168859 (Version 1)
Quarter: 2020Q3

REPORT INFORMATION
  Report Type: Spontaneous
  Country: US (occurrence: US)
  Receive Date: 20200818
  Receipt Date: 20200818
  Transmission Date: 20201103
  Serious: Yes (Other)
  Sender: FDA-Public Use
  Company Number: None

PATIENT
  Age: 76 Year
  Sex: Male
  Weight: 67.5 kg

DRUGS (6)
  1. COENZYME Q10 [Concomitant]
     Active Substance: DIETARY SUPPLEMENT\UBIDECARENONE
  2. VIT D [Concomitant]
     Active Substance: VITAMIN D NOS
  3. PROBIOTIC [Concomitant]
     Active Substance: PROBIOTICS NOS
  4. DOXYCYCLINE HYC 100 MG CAP [Suspect]
     Active Substance: DOXYCYCLINE HYCLATE
     Indication: VISUAL IMPAIRMENT
     Dosage: ?          QUANTITY:20 CAPSULE(S);?
     Route: 048
  5. SIMVASTATIN 5MG TABLET ^AMEL^ [Concomitant]
     Active Substance: SIMVASTATIN
  6. VIT B?12 [Concomitant]

REACTIONS (1)
  - Malaise [None]

NARRATIVE: CASE EVENT DATE: 20190814
